FAERS Safety Report 4308651-X (Version None)
Quarter: 2004Q1

REPORT INFORMATION
  Report Type: 
  Country: None (occurrence: None)
  Receive Date: 20040227
  Receipt Date: 20040210
  Transmission Date: 20041129
  Serious: Yes (Disabling)
  Sender: FDA-Public Use
  Company Number: 200309904

PATIENT
  Age: 38 Year
  Sex: Female
  Weight: 49.8957 kg

DRUGS (2)
  1. BOTOX [Suspect]
     Indication: SKIN WRINKLING
     Dosage: 24 UNITS PRN IM
     Route: 030
     Dates: start: 20010701, end: 20011219
  2. AMBIEN [Concomitant]

REACTIONS (21)
  - ARTHROPATHY [None]
  - ARTIFICIAL CROWN PROCEDURE [None]
  - BREAST CYST [None]
  - BREAST HYPOPLASIA [None]
  - DYSARTHRIA [None]
  - EAR INFECTION [None]
  - EYELID FUNCTION DISORDER [None]
  - FACIAL PALSY [None]
  - FATIGUE [None]
  - GINGIVAL BLEEDING [None]
  - GINGIVAL RECESSION [None]
  - GINGIVITIS [None]
  - INFLUENZA LIKE ILLNESS [None]
  - INJECTION SITE HAEMORRHAGE [None]
  - INJECTION SITE PAIN [None]
  - MASTOPTOSIS [None]
  - MIGRAINE [None]
  - PARAESTHESIA [None]
  - SURGICAL PROCEDURE REPEATED [None]
  - TOOTH DISORDER [None]
  - TRANSPLANT [None]
